FAERS Safety Report 23352471 (Version 1)
Quarter: 2023Q4

REPORT INFORMATION
  Report Type: Report from Study
  Country: US (occurrence: US)
  Receive Date: 20231229
  Receipt Date: 20231229
  Transmission Date: 20240110
  Serious: Yes (Other)
  Sender: FDA-Public Use
  Company Number: US-ABBVIE-5561226

PATIENT
  Sex: Female

DRUGS (2)
  1. HUMIRA [Suspect]
     Active Substance: ADALIMUMAB
     Indication: Psoriatic arthropathy
     Route: 058
  2. HUMIRA [Suspect]
     Active Substance: ADALIMUMAB
     Route: 058

REACTIONS (10)
  - Seizure [Unknown]
  - Peripheral swelling [Unknown]
  - Psoriasis [Unknown]
  - Musculoskeletal stiffness [Recovered/Resolved]
  - Therapeutic product effect incomplete [Unknown]
  - Fall [Unknown]
  - Pain [Unknown]
  - Movement disorder [Unknown]
  - Head injury [Unknown]
  - Feeling drunk [Unknown]
